FAERS Safety Report 14630971 (Version 6)
Quarter: 2018Q3

REPORT INFORMATION
  Report Type: Spontaneous
  Country: DK (occurrence: DK)
  Receive Date: 20180313
  Receipt Date: 20180815
  Transmission Date: 20181010
  Serious: Yes (Hospitalization, Other)
  Sender: FDA-Public Use
  Company Number: DK-ELI_LILLY_AND_COMPANY-DK201803002796

PATIENT
  Age: 81 Year
  Sex: Female
  Weight: 50 kg

DRUGS (23)
  1. TEMOZOLOMIDE. [Suspect]
     Active Substance: TEMOZOLOMIDE
     Indication: CHRONIC LYMPHOCYTIC LEUKAEMIA
     Dosage: UNK UNK, UNKNOWN
     Route: 065
  2. IRINOTECAN [Suspect]
     Active Substance: IRINOTECAN
     Indication: CHRONIC LYMPHOCYTIC LEUKAEMIA
     Dosage: UNK UNK, UNKNOWN
     Route: 065
  3. VINCRISTINE [Suspect]
     Active Substance: VINCRISTINE
     Indication: PRODUCT USED FOR UNKNOWN INDICATION
     Dosage: UNK, UNKNOWN
     Route: 065
  4. THALIDOMIDE [Suspect]
     Active Substance: THALIDOMIDE
     Indication: CHRONIC LYMPHOCYTIC LEUKAEMIA
     Dosage: UNK UNK, UNKNOWN
     Route: 065
  5. FOSAMAX [Suspect]
     Active Substance: ALENDRONATE SODIUM
     Indication: CHRONIC LYMPHOCYTIC LEUKAEMIA
     Dosage: 70 MG, WEEKLY (1/W)
     Route: 048
     Dates: start: 20150409
  6. FOSAMAX [Suspect]
     Active Substance: ALENDRONATE SODIUM
     Indication: OSTEOPOROSIS
  7. CAPECITABINE. [Suspect]
     Active Substance: CAPECITABINE
     Indication: CHRONIC LYMPHOCYTIC LEUKAEMIA
     Dosage: UNK UNK, UNKNOWN
     Route: 065
  8. HERCEPTIN [Suspect]
     Active Substance: TRASTUZUMAB
     Indication: CHRONIC LYMPHOCYTIC LEUKAEMIA
     Dosage: UNK UNK, UNKNOWN
     Route: 065
  9. XGEVA [Suspect]
     Active Substance: DENOSUMAB
     Indication: METASTASES TO BONE
  10. CISPLATIN. [Suspect]
     Active Substance: CISPLATIN
     Indication: CHRONIC LYMPHOCYTIC LEUKAEMIA
     Dosage: UNK UNK, UNKNOWN
     Route: 065
  11. PREDNISOLONE. [Suspect]
     Active Substance: PREDNISOLONE
     Indication: PRODUCT USED FOR UNKNOWN INDICATION
     Dosage: 7.5 MG, DAILY
     Route: 048
     Dates: start: 20151021, end: 20160831
  12. CARBOPLATIN. [Suspect]
     Active Substance: CARBOPLATIN
     Indication: CHRONIC LYMPHOCYTIC LEUKAEMIA
     Dosage: UNK UNK, UNKNOWN
     Route: 065
  13. ALIMTA [Suspect]
     Active Substance: PEMETREXED DISODIUM
     Indication: CHRONIC LYMPHOCYTIC LEUKAEMIA
     Dosage: UNK UNK, UNKNOWN
     Route: 065
  14. XGEVA [Suspect]
     Active Substance: DENOSUMAB
     Indication: CHRONIC LYMPHOCYTIC LEUKAEMIA
     Dosage: 120 MG, UNKNOWN
     Route: 058
     Dates: start: 20150409, end: 20170305
  15. VINORELBINE [Suspect]
     Active Substance: VINORELBINE\VINORELBINE TARTRATE
     Indication: CHRONIC LYMPHOCYTIC LEUKAEMIA
     Dosage: UNK UNK, UNKNOWN
     Route: 065
  16. ALKERAN [Suspect]
     Active Substance: MELPHALAN
     Indication: PRODUCT USED FOR UNKNOWN INDICATION
     Dosage: UNK, UNKNOWN
     Route: 065
  17. CYTARABINE. [Suspect]
     Active Substance: CYTARABINE
     Indication: PRODUCT USED FOR UNKNOWN INDICATION
     Dosage: UNK, UNKNOWN
     Route: 065
  18. CYCLOPHOSPHAMIDE. [Suspect]
     Active Substance: CYCLOPHOSPHAMIDE
     Indication: CHRONIC LYMPHOCYTIC LEUKAEMIA
     Dosage: UNK UNK, UNKNOWN
     Route: 065
  19. GLIVEC [Suspect]
     Active Substance: IMATINIB MESYLATE
     Indication: CHRONIC LYMPHOCYTIC LEUKAEMIA
     Dosage: 100 MG ? 400 MG, TABLET X 3 OR 1 TABLET X 1
     Route: 065
  20. BLINATUMOMAB [Suspect]
     Active Substance: BLINATUMOMAB
     Indication: PRODUCT USED FOR UNKNOWN INDICATION
     Dosage: UNK, UNKNOWN
     Route: 065
  21. OXALIPLATIN. [Suspect]
     Active Substance: OXALIPLATIN
     Indication: PRODUCT USED FOR UNKNOWN INDICATION
     Dosage: UNK, UNKNOWN
     Route: 065
  22. TRASTUZUMAB. [Suspect]
     Active Substance: TRASTUZUMAB
     Indication: METASTASES TO LUNG
     Dosage: UNK, UNKNOWN
     Route: 065
  23. ALENDRONAT BLUEFISH [Suspect]
     Active Substance: ALENDRONATE SODIUM
     Indication: OSTEOPOROSIS
     Dosage: 70 MG, WEEKLY (1/W)
     Route: 048

REACTIONS (2)
  - Osteonecrosis of jaw [Recovered/Resolved]
  - Off label use [Unknown]
